FAERS Safety Report 9337767 (Version 1)
Quarter: 2013Q2

REPORT INFORMATION
  Report Type: Spontaneous
  Country: IN (occurrence: IN)
  Receive Date: 20130607
  Receipt Date: 20130607
  Transmission Date: 20140414
  Serious: Yes (Other)
  Sender: FDA-Public Use
  Company Number: IN-MYLANLABS-2013S1011636

PATIENT
  Age: 69 Year
  Sex: Male

DRUGS (4)
  1. PEPZEN D [Suspect]
     Dosage: DICLOFENAC/SERRAPEPTASE 50MG/10MG THREE TIMES A DAY
     Route: 065
  2. ATENOLOL [Interacting]
     Indication: HYPERTENSION
     Route: 065
  3. RANITIDINE [Concomitant]
     Route: 065
  4. AMPICLOX                           /00190301/ [Concomitant]
     Dosage: AMPICILLIN/CLOXACILLIN 250MG/250MG THREE TIMES A DAY FOR 7 DAYS
     Route: 065

REACTIONS (3)
  - Renal failure acute [Recovered/Resolved]
  - Drug interaction [Recovered/Resolved]
  - Local swelling [None]
